FAERS Safety Report 5558073-9 (Version None)
Quarter: 2007Q4

REPORT INFORMATION
  Report Type: 
  Country: None (occurrence: None)
  Receive Date: 20071214
  Receipt Date: 20071129
  Transmission Date: 20080405
  Serious: Yes (Hospitalization)
  Sender: FDA-Public Use
  Company Number: ES-RANBAXY-2007RR-11778

PATIENT

DRUGS (3)
  1. PARACETAMOL MUNDOGEN 500MG COMPRIMIDOS EFG [Suspect]
     Indication: OSTEOARTHRITIS
     Dosage: 650 MG, QD
  2. PAROXETIN RANBAXY 20MG FILMTABLETTEN [Suspect]
  3. ALCOHOL [Concomitant]
     Dosage: {10 G, QD

REACTIONS (1)
  - LIVER INJURY [None]
